FAERS Safety Report 22177931 (Version 13)
Quarter: 2024Q4

REPORT INFORMATION
  Report Type: Report from Study
  Country: US (occurrence: US)
  Receive Date: 20230405
  Receipt Date: 20241008
  Transmission Date: 20250115
  Serious: No
  Sender: NOVARTIS
  Company Number: US-002147023-NVSC2023US079238

PATIENT
  Age: 66 Year
  Sex: Female
  Weight: 58.96 kg

DRUGS (3)
  1. KESIMPTA [Suspect]
     Active Substance: OFATUMUMAB
     Indication: Multiple sclerosis
     Dosage: UNK
     Route: 065
  2. KESIMPTA [Suspect]
     Active Substance: OFATUMUMAB
     Dosage: 20 MG
     Route: 058
     Dates: start: 20230412
  3. KESIMPTA [Suspect]
     Active Substance: OFATUMUMAB
     Dosage: 20 MG, QMO
     Route: 058
     Dates: start: 202306

REACTIONS (12)
  - White blood cell count decreased [Not Recovered/Not Resolved]
  - Red blood cell count decreased [Unknown]
  - Dizziness [Recovering/Resolving]
  - Nausea [Recovered/Resolved]
  - Illness [Recovered/Resolved]
  - Decreased immune responsiveness [Unknown]
  - Confusional state [Unknown]
  - Hypoaesthesia [Recovering/Resolving]
  - Paraesthesia [Recovering/Resolving]
  - Full blood count decreased [Unknown]
  - Inappropriate schedule of product administration [Unknown]
  - Therapeutic response shortened [Unknown]

NARRATIVE: CASE EVENT DATE: 20230412
